FAERS Safety Report 4722608-6 (Version None)
Quarter: 2005Q3

REPORT INFORMATION
  Report Type: 
  Country: None (occurrence: None)
  Receive Date: 20050719
  Receipt Date: 20040928
  Transmission Date: 20060218
  Serious: Yes (Hospitalization)
  Sender: FDA-Public Use
  Company Number: 2004236376US

PATIENT
  Age: 68 Year
  Sex: Male

DRUGS (3)
  1. CELEBREX [Suspect]
     Indication: ARTHRITIS
     Dosage: 200 MG, QD
     Dates: start: 20000925, end: 20001116
  2. ASPIRIN [Concomitant]
  3. NORVASC [Concomitant]

REACTIONS (1)
  - CHEST PAIN [None]
